FAERS Safety Report 4367184-5 (Version None)
Quarter: 2004Q2

REPORT INFORMATION
  Report Type: 
  Country: None (occurrence: None)
  Receive Date: 20040528
  Receipt Date: 20040519
  Transmission Date: 20050107
  Serious: Yes (Other)
  Sender: FDA-Public Use
  Company Number: PHEH2004US05600

PATIENT
  Sex: Male

DRUGS (2)
  1. GLEEVEC [Suspect]
  2. ZOCOR [Suspect]

REACTIONS (2)
  - HYPERLIPIDAEMIA [None]
  - RHABDOMYOLYSIS [None]
